FAERS Safety Report 12474361 (Version 1)
Quarter: 2016Q2

REPORT INFORMATION
  Report Type: Spontaneous
  Country: US (occurrence: None)
  Receive Date: 20160616
  Receipt Date: 20160616
  Transmission Date: 20160815
  Serious: Yes (Life-Threatening, Other)
  Sender: FDA-Public Use
  Company Number: None

PATIENT
  Age: 37 Year
  Sex: Female
  Weight: 72.58 kg

DRUGS (5)
  1. SAVELLA [Suspect]
     Active Substance: MILNACIPRAN HYDROCHLORIDE
     Indication: FIBROMYALGIA
     Route: 048
     Dates: start: 20160601, end: 20160613
  2. METHOTREXATE [Concomitant]
     Active Substance: METHOTREXATE
  3. TRAMADOL. [Concomitant]
     Active Substance: TRAMADOL
  4. REMICADE [Concomitant]
     Active Substance: INFLIXIMAB
  5. BIRTH CONTROL PILLS [Concomitant]
     Active Substance: UNSPECIFIED INGREDIENT

REACTIONS (4)
  - Anger [None]
  - Suicidal ideation [None]
  - Irritability [None]
  - Homicidal ideation [None]

NARRATIVE: CASE EVENT DATE: 20160613
